FAERS Safety Report 18572191 (Version 1)
Quarter: 2020Q4

REPORT INFORMATION
  Report Type: Spontaneous
  Country: CN (occurrence: CN)
  Receive Date: 20201202
  Receipt Date: 20201202
  Transmission Date: 20210114
  Serious: Yes (Other)
  Sender: FDA-Public Use
  Company Number: CN-PFIZER INC-2020469831

PATIENT
  Age: 76 Year
  Sex: Male
  Weight: 52 kg

DRUGS (2)
  1. MEDROL [Suspect]
     Active Substance: METHYLPREDNISOLONE
     Indication: GLOMERULONEPHRITIS MEMBRANOUS
     Dosage: 24 MG, 1X/DAY
     Route: 048
     Dates: start: 20201104, end: 20201125
  2. MEDROL [Suspect]
     Active Substance: METHYLPREDNISOLONE
     Indication: NEPHROTIC SYNDROME
     Dosage: 32 MG, 1X/DAY
     Route: 048
     Dates: start: 20201006, end: 20201103

REACTIONS (1)
  - Diabetes mellitus [Recovering/Resolving]

NARRATIVE: CASE EVENT DATE: 20201104
